FAERS Safety Report 20393361 (Version 1)
Quarter: 2022Q1

REPORT INFORMATION
  Report Type: Spontaneous
  Country: US (occurrence: None)
  Receive Date: 20220128
  Receipt Date: 20220128
  Transmission Date: 20220423
  Serious: Yes (unspecified)
  Sender: FDA-Public Use
  Company Number: None

PATIENT
  Age: 69 Year
  Sex: Female
  Weight: 85.05 kg

DRUGS (1)
  1. CAPECITABINE [Suspect]
     Active Substance: CAPECITABINE
     Indication: Breast cancer
     Dosage: OTHER FREQUENCY : 5TPO BID DAYS 1-14;?
     Dates: start: 20220104, end: 20220115

REACTIONS (4)
  - Diarrhoea [None]
  - Stomatitis [None]
  - Lethargy [None]
  - Hypophagia [None]

NARRATIVE: CASE EVENT DATE: 20220104
